FAERS Safety Report 9786275 (Version 1)
Quarter: 2013Q4

REPORT INFORMATION
  Report Type: Spontaneous
  Country: RU (occurrence: RU)
  Receive Date: 20131227
  Receipt Date: 20131227
  Transmission Date: 20140711
  Serious: Yes (Life-Threatening, Hospitalization, Other)
  Sender: FDA-Public Use
  Company Number: RU-ASTRAZENECA-2013SE93893

PATIENT
  Age: 33 Year
  Sex: Male

DRUGS (4)
  1. BRILINTA [Suspect]
     Indication: ACUTE MYOCARDIAL INFARCTION
     Route: 048
     Dates: start: 20131203, end: 20131217
  2. BRILINTA [Suspect]
     Indication: ACUTE MYOCARDIAL INFARCTION
     Route: 048
     Dates: start: 20131220
  3. ACETYLSALICYLIC ACID [Concomitant]
  4. BETA BLOCKERS [Concomitant]

REACTIONS (2)
  - Thrombosis in device [Recovered/Resolved]
  - Therapy cessation [Recovered/Resolved]
